FAERS Safety Report 8280224-6 (Version None)
Quarter: 2012Q2

REPORT INFORMATION
  Report Type: 
  Country: None (occurrence: None)
  Receive Date: 20120412
  Receipt Date: 20110509
  Transmission Date: 20120825
  Serious: No
  Sender: FDA-Public Use
  Company Number: US-ASTRAZENECA-2010SE52144

PATIENT
  Age: 73 Year
  Sex: Female

DRUGS (1)
  1. NEXIUM [Suspect]
     Route: 048

REACTIONS (4)
  - CARDIAC DISORDER [None]
  - INCORRECT DOSE ADMINISTERED [None]
  - SENSORY DISTURBANCE [None]
  - INNER EAR DISORDER [None]
